FAERS Safety Report 4002309 (Version 3)
Quarter: 2015Q4

REPORT INFORMATION
  Report Type: Spontaneous
  Country: US (occurrence: US)
  Receive Date: 20030924
  Receipt Date: 20151117
  Transmission Date: 20160305
  Serious: Yes (Other)
  Sender: FDA-Public Use
  Company Number: US-GLAXOSMITHKLINE-A0417185A

PATIENT
  Sex: Female

DRUGS (4)
  1. FLOVENT [Interacting]
     Active Substance: FLUTICASONE PROPIONATE
     Dosage: 220 UG, U
     Route: 055
  2. UNIPHYL [Interacting]
     Active Substance: THEOPHYLLINE ANHYDROUS
     Dosage: UNK
     Dates: end: 2012
  3. SEREVENT DISKUS [Concomitant]
     Active Substance: SALMETEROL XINAFOATE
  4. ADVAIR HFA [Suspect]
     Active Substance: FLUTICASONE PROPIONATE\SALMETEROL XINAFOATE
     Indication: ASTHMA
     Dosage: UNK UNK, U
     Route: 055

REACTIONS (7)
  - Dyspnoea [Unknown]
  - Discomfort [Unknown]
  - Drug effect decreased [Unknown]
  - Drug interaction [Unknown]
  - Aphonia [Unknown]
  - Pneumonia [Recovered/Resolved]
  - Malaise [Unknown]

NARRATIVE: CASE EVENT DATE: 2015
